FAERS Safety Report 5093350-X (Version None)
Quarter: 2006Q3

REPORT INFORMATION
  Report Type: 
  Country: None (occurrence: None)
  Receive Date: 20060828
  Receipt Date: 20060815
  Transmission Date: 20061208
  Serious: Yes (Hospitalization)
  Sender: FDA-Public Use
  Company Number: GXKR2006GB04810

PATIENT
  Age: 54 Year
  Sex: Female

DRUGS (4)
  1. DIAZEPAM [Suspect]
  2. COAPROVEL (HYDROCHLOROTHIAZIDE, IRBESARTAN) TABLET [Suspect]
     Indication: HYPERTENSION
     Dosage: 32 X 300 MG/12.5 MG, ORAL
     Route: 048
  3. ACETAMINOPHEN [Suspect]
  4. ALCOHOL (ETHANOL) [Suspect]

REACTIONS (4)
  - ELECTROCARDIOGRAM ST SEGMENT DEPRESSION [None]
  - HYPOTENSION [None]
  - INTENTIONAL OVERDOSE [None]
  - SINUS TACHYCARDIA [None]
